FAERS Safety Report 8273710-6 (Version None)
Quarter: 2012Q2

REPORT INFORMATION
  Report Type: 
  Country: None (occurrence: None)
  Receive Date: 20120411
  Receipt Date: 20120312
  Transmission Date: 20120825
  Serious: No
  Sender: FDA-Public Use
  Company Number: US-TEVA-327936USA

PATIENT
  Sex: Male

DRUGS (4)
  1. MODAFINIL [Suspect]
     Indication: NARCOLEPSY
  2. NUVIGIL [Suspect]
     Indication: ATTENTION DEFICIT/HYPERACTIVITY DISORDER
     Route: 048
     Dates: start: 20120311, end: 20120311
  3. NUVIGIL [Suspect]
     Indication: NARCOLEPSY
  4. MODAFINIL [Suspect]
     Indication: ATTENTION DEFICIT/HYPERACTIVITY DISORDER
     Route: 048
     Dates: start: 20110301, end: 20120301

REACTIONS (4)
  - MIGRAINE [None]
  - ANXIETY [None]
  - HYPERSENSITIVITY [None]
  - EYE PAIN [None]
